FAERS Safety Report 4867051-4 (Version None)
Quarter: 2005Q4

REPORT INFORMATION
  Report Type: 
  Country: None (occurrence: None)
  Receive Date: 20051222
  Receipt Date: 20051213
  Transmission Date: 20060501
  Serious: Yes (Hospitalization, Other)
  Sender: FDA-Public Use
  Company Number: 2005-12-0618

PATIENT
  Age: 70 Year
  Sex: Male

DRUGS (24)
  1. DIPROLENE [Suspect]
     Indication: RASH
     Dosage: TOP-DERM
     Route: 061
     Dates: start: 20051019, end: 20051028
  2. PREDONINE TABLETS [Suspect]
     Indication: IDIOPATHIC PULMONARY FIBROSIS
     Dosage: SEE IMAGE
     Route: 048
  3. PREDONINE TABLETS [Suspect]
     Indication: IDIOPATHIC PULMONARY FIBROSIS
     Dosage: SEE IMAGE
     Route: 048
  4. PREDONINE TABLETS [Suspect]
     Indication: IDIOPATHIC PULMONARY FIBROSIS
     Dosage: SEE IMAGE
     Route: 048
  5. PREDONINE TABLETS [Suspect]
     Indication: IDIOPATHIC PULMONARY FIBROSIS
     Dosage: SEE IMAGE
     Route: 048
     Dates: start: 20010101
  6. PREDONINE TABLETS [Suspect]
     Indication: IDIOPATHIC PULMONARY FIBROSIS
     Dosage: SEE IMAGE
     Route: 048
     Dates: start: 20041023
  7. PREDONINE TABLETS [Suspect]
     Indication: IDIOPATHIC PULMONARY FIBROSIS
     Dosage: SEE IMAGE
     Route: 048
     Dates: start: 20041119
  8. PREDONINE TABLETS [Suspect]
     Indication: IDIOPATHIC PULMONARY FIBROSIS
     Dosage: SEE IMAGE
     Route: 048
     Dates: start: 20050513
  9. COTRIM [Concomitant]
  10. S-7701 (BLINDED PIRFENIDONE) [Concomitant]
  11. CLARITHROMYCIN [Concomitant]
  12. LENDORMIN [Concomitant]
  13. FUNGIZONE [Concomitant]
  14. ZANTAC [Concomitant]
  15. FOSAMAX [Concomitant]
  16. TAKA-DIASTASE [Concomitant]
  17. MAGNESIUM OXIDE [Concomitant]
  18. EURAX [Concomitant]
  19. MYSER (DIFLUPREDNATE) [Concomitant]
  20. DIACORT [Concomitant]
  21. HIRUDOID [Concomitant]
  22. NERISONA [Concomitant]
  23. PANDEL [Concomitant]
  24. CLARITHROMYCIN [Concomitant]

REACTIONS (4)
  - OSTEONECROSIS [None]
  - PNEUMOCYSTIS JIROVECI PNEUMONIA [None]
  - PRURITUS [None]
  - RASH [None]
